FAERS Safety Report 22608229 (Version 1)
Quarter: 2023Q2

REPORT INFORMATION
  Report Type: Spontaneous
  Country: BE (occurrence: BE)
  Receive Date: 20230616
  Receipt Date: 20230616
  Transmission Date: 20230721
  Serious: Yes (Hospitalization)
  Sender: FDA-Public Use
  Company Number: BE-STRIDES ARCOLAB LIMITED-2023SP009422

PATIENT
  Age: 50 Year
  Sex: Male

DRUGS (13)
  1. IBUPROFEN [Suspect]
     Active Substance: IBUPROFEN
     Indication: Pyrexia
     Dosage: 1800 MILLIGRAM; IBUPROFEN AT MAXIMUM DOSE OF 1800MG EVERY 24 HOURS; EVERY 24 HRS
     Route: 065
     Dates: start: 2021
  2. NIVOLUMAB [Suspect]
     Active Substance: NIVOLUMAB
     Indication: Metastatic malignant melanoma
     Dosage: UNK
     Route: 065
     Dates: start: 202007, end: 202011
  3. DABRAFENIB [Suspect]
     Active Substance: DABRAFENIB
     Indication: Metastatic malignant melanoma
     Dosage: 150 MILLIGRAM, BID
     Route: 065
     Dates: start: 202103
  4. DABRAFENIB [Suspect]
     Active Substance: DABRAFENIB
     Dosage: UNK; REDUCED
     Route: 065
     Dates: start: 2021
  5. DABRAFENIB [Suspect]
     Active Substance: DABRAFENIB
     Dosage: UNK; INCREASED
     Route: 065
     Dates: start: 2021
  6. TRAMETINIB [Suspect]
     Active Substance: TRAMETINIB
     Indication: Metastatic malignant melanoma
     Dosage: 2 MILLIGRAM, QD
     Route: 065
     Dates: start: 202103
  7. TRAMETINIB [Suspect]
     Active Substance: TRAMETINIB
     Dosage: UNK; REDUCED
     Route: 065
     Dates: start: 2021
  8. TRAMETINIB [Suspect]
     Active Substance: TRAMETINIB
     Dosage: UNK; INCREASED
     Route: 065
     Dates: start: 2021
  9. COTRIMOXAZOLE [Suspect]
     Active Substance: SULFAMETHOXAZOLE\TRIMETHOPRIM
     Indication: Antifungal prophylaxis
     Dosage: UNK, THRICE  A WEEK; COTRIMOXAZOLE 800MG/160MG THREE TIMES PER WEEK
     Route: 065
     Dates: start: 2021
  10. PANTOPRAZOLE [Suspect]
     Active Substance: PANTOPRAZOLE
     Indication: Gastrooesophageal reflux prophylaxis
     Dosage: 40 MILLIGRAM, QD
     Route: 065
     Dates: start: 2021
  11. ACETAMINOPHEN [Concomitant]
     Active Substance: ACETAMINOPHEN
     Indication: Pyrexia
     Dosage: 4 GRAM; PARACETAMOL AT MAXIMUM DOSE OF 4GM EVERY 24 HOURS
     Route: 065
     Dates: start: 2021
  12. METHYLPREDNISOLONE [Concomitant]
     Active Substance: METHYLPREDNISOLONE
     Indication: Product used for unknown indication
     Dosage: 16 MILLIGRAM
     Route: 065
     Dates: start: 2021
  13. METHYLPREDNISOLONE [Concomitant]
     Active Substance: METHYLPREDNISOLONE
     Dosage: UNK; TAPERED
     Route: 065

REACTIONS (1)
  - Tubulointerstitial nephritis [Recovered/Resolved]

NARRATIVE: CASE EVENT DATE: 20210101
